FAERS Safety Report 16899691 (Version 1)
Quarter: 2019Q4

REPORT INFORMATION
  Report Type: Spontaneous
  Country: US (occurrence: US)
  Receive Date: 20191008
  Receipt Date: 20191008
  Transmission Date: 20200122
  Serious: Yes (Other)
  Sender: FDA-Public Use
  Company Number: None

PATIENT
  Age: 38 Year
  Sex: Female
  Weight: 112.5 kg

DRUGS (10)
  1. VITAMIN D [Concomitant]
     Active Substance: VITAMIN D NOS
  2. NP THYROID [Suspect]
     Active Substance: LEVOTHYROXINE\LIOTHYRONINE
     Indication: AUTOIMMUNE THYROIDITIS
     Route: 048
     Dates: start: 20190909, end: 20191007
  3. NOVOLOG [Concomitant]
     Active Substance: INSULIN ASPART
  4. IBUPROFEN. [Concomitant]
     Active Substance: IBUPROFEN
  5. BIOTE DIM [Concomitant]
  6. NP THYROID [Suspect]
     Active Substance: LEVOTHYROXINE\LIOTHYRONINE
     Indication: HYPOTHYROIDISM
     Route: 048
     Dates: start: 20190909, end: 20191007
  7. VITAMINS [Concomitant]
     Active Substance: VITAMINS
  8. METHYL B12 [Concomitant]
     Active Substance: METHYLCOBALAMIN
  9. SYNTHROID [Concomitant]
     Active Substance: LEVOTHYROXINE SODIUM
  10. METOPROLOL. [Concomitant]
     Active Substance: METOPROLOL

REACTIONS (11)
  - Blood pressure increased [None]
  - Product substitution issue [None]
  - Product odour abnormal [None]
  - Muscle spasms [None]
  - Headache [None]
  - Abdominal distension [None]
  - Therapy change [None]
  - Epistaxis [None]
  - Arthralgia [None]
  - Nausea [None]
  - Fatigue [None]

NARRATIVE: CASE EVENT DATE: 20190915
